FAERS Safety Report 5567053-9 (Version None)
Quarter: 2007Q4

REPORT INFORMATION
  Report Type: 
  Country: None (occurrence: None)
  Receive Date: 20071219
  Receipt Date: 20071210
  Transmission Date: 20080405
  Serious: Yes (Death, Hospitalization, Other)
  Sender: FDA-Public Use
  Company Number: US-ROCHE-536357

PATIENT
  Age: 47 Year
  Sex: Male

DRUGS (3)
  1. PEGASYS [Suspect]
     Route: 065
     Dates: start: 20070605
  2. RIBAVIRIN [Suspect]
     Route: 065
     Dates: start: 20070605
  3. ANTIHYPERTENSIVE NOS [Concomitant]

REACTIONS (6)
  - DEATH [None]
  - DEEP VEIN THROMBOSIS [None]
  - GROIN PAIN [None]
  - NEUTROPHIL COUNT DECREASED [None]
  - PAIN IN EXTREMITY [None]
  - SEPSIS [None]
